FAERS Safety Report 9519494 (Version 1)
Quarter: 2013Q3

REPORT INFORMATION
  Report Type: Spontaneous
  Country: JP (occurrence: JP)
  Receive Date: 20130912
  Receipt Date: 20130912
  Transmission Date: 20140515
  Serious: Yes (Other)
  Sender: FDA-Public Use
  Company Number: JP-PFIZER INC-2013257203

PATIENT
  Age: 67 Year
  Sex: Female

DRUGS (1)
  1. AMLODIN [Suspect]
     Indication: HYPERTENSION
     Dosage: UNK

REACTIONS (1)
  - Gastroenteritis eosinophilic [Recovered/Resolved]
